FAERS Safety Report 14462968 (Version 1)
Quarter: 2018Q1

REPORT INFORMATION
  Report Type: Spontaneous
  Country: US (occurrence: US)
  Receive Date: 20180130
  Receipt Date: 20180130
  Transmission Date: 20180509
  Serious: Yes (Hospitalization)
  Sender: FDA-Public Use
  Company Number: US-ALLERGAN-1804338US

PATIENT

DRUGS (1)
  1. OXYBUTYNIN UNK [Suspect]
     Active Substance: OXYBUTYNIN
     Indication: HYPERHIDROSIS
     Dosage: 1 G, QAM
     Route: 061

REACTIONS (3)
  - Pyelonephritis [Unknown]
  - Drug administration error [Unknown]
  - Off label use [Unknown]
